FAERS Safety Report 9265076 (Version 3)
Quarter: 2013Q2

REPORT INFORMATION
  Report Type: Spontaneous
  Country: JP (occurrence: JP)
  Receive Date: 20130501
  Receipt Date: 20130619
  Transmission Date: 20140414
  Serious: Yes (Hospitalization, Other)
  Sender: FDA-Public Use
  Company Number: JP-ASTELLAS-2013JP005504

PATIENT
  Age: 84 Year
  Sex: Male

DRUGS (7)
  1. PROGRAF [Suspect]
     Indication: RHEUMATOID ARTHRITIS
     Dosage: 1.5 MG, UID/QD
     Route: 048
     Dates: start: 20121122, end: 2013
  2. PROGRAF [Suspect]
     Dosage: 1 MG, UNKNOWN/D
     Route: 048
     Dates: start: 2013
  3. RHEUMATREX /00113801/ [Suspect]
     Indication: RHEUMATOID ARTHRITIS
     Dosage: 6 MG, WEEKLY
     Route: 048
     Dates: start: 2010
  4. ENBREL [Suspect]
     Dosage: 50 MG, WEEKLY
     Route: 058
     Dates: start: 20120924
  5. PREDNISOLONE [Concomitant]
     Dosage: 2 MG, UID/QD
     Route: 048
     Dates: start: 2010
  6. HALCION [Concomitant]
     Dosage: 0.25 MG, UID/QD
     Route: 048
     Dates: start: 201112
  7. JANUVIA [Concomitant]
     Dosage: 25 MG, UID/QD
     Route: 048
     Dates: start: 2010

REACTIONS (2)
  - Renal impairment [Not Recovered/Not Resolved]
  - Pneumonia [Recovered/Resolved]
